FAERS Safety Report 24941621 (Version 1)
Quarter: 2025Q1

REPORT INFORMATION
  Report Type: Spontaneous
  Country: CA (occurrence: CA)
  Receive Date: 20250207
  Receipt Date: 20250207
  Transmission Date: 20250409
  Serious: Yes (Hospitalization)
  Sender: ACCORD
  Company Number: None

PATIENT
  Age: 76 Year
  Sex: Female
  Weight: 55 kg

DRUGS (8)
  1. QUETIAPINE [Suspect]
     Active Substance: QUETIAPINE
     Indication: Product used for unknown indication
     Route: 048
  2. ARIPIPRAZOLE [Suspect]
     Active Substance: ARIPIPRAZOLE
     Indication: Product used for unknown indication
     Route: 048
  3. LITHIUM [Suspect]
     Active Substance: LITHIUM
     Indication: Product used for unknown indication
     Route: 048
  4. ACETAMINOPHEN [Concomitant]
     Active Substance: ACETAMINOPHEN
  5. PANTOPRAZOLE [Concomitant]
     Active Substance: PANTOPRAZOLE
     Route: 042
  6. RISEDRONATE SODIUM [Concomitant]
     Active Substance: RISEDRONATE SODIUM
  7. QUETIAPINE [Suspect]
     Active Substance: QUETIAPINE
     Indication: Product used for unknown indication
     Route: 048
  8. QUETIAPINE [Suspect]
     Active Substance: QUETIAPINE
     Indication: Product used for unknown indication
     Route: 048

REACTIONS (12)
  - Apnoea [Unknown]
  - Infection [Unknown]
  - Pyrexia [Unknown]
  - Hypokalaemia [Unknown]
  - Neuroleptic malignant syndrome [Unknown]
  - Hyperhidrosis [Unknown]
  - Hypertension [Unknown]
  - Confusional state [Unknown]
  - Depressed level of consciousness [Unknown]
  - Incontinence [Unknown]
  - Dyspnoea [Unknown]
  - Unresponsive to stimuli [Unknown]
